FAERS Safety Report 7372962-4 (Version None)
Quarter: 2011Q1

REPORT INFORMATION
  Report Type: 
  Country: None (occurrence: None)
  Receive Date: 20110324
  Receipt Date: 20110315
  Transmission Date: 20110831
  Serious: Yes (Other)
  Sender: FDA-Public Use
  Company Number: CA-ELI_LILLY_AND_COMPANY-CA201103004640

PATIENT
  Age: 50 Year
  Sex: Male

DRUGS (6)
  1. CYMBALTA [Suspect]
     Dosage: UNK, UNKNOWN
  2. OXYCONTIN [Concomitant]
  3. MORPHINE [Concomitant]
  4. CYMBALTA [Suspect]
     Indication: DEPRESSION
     Dosage: 120 MG, DAILY (1/D)
  5. CYMBALTA [Suspect]
     Dosage: 60 MG, DAILY (1/D)
  6. PERCOCET [Concomitant]

REACTIONS (10)
  - DRUG WITHDRAWAL SYNDROME [None]
  - DIZZINESS [None]
  - HEADACHE [None]
  - HYPERTENSION [None]
  - INTENTIONAL DRUG MISUSE [None]
  - NERVE COMPRESSION [None]
  - CEREBROVASCULAR ACCIDENT [None]
  - DISLOCATION OF VERTEBRA [None]
  - PARAESTHESIA [None]
  - FEELING ABNORMAL [None]
